FAERS Safety Report 6337505-2 (Version None)
Quarter: 2009Q3

REPORT INFORMATION
  Report Type: 
  Country: None (occurrence: None)
  Receive Date: 20090902
  Receipt Date: 20090820
  Transmission Date: 20100115
  Serious: Yes (Disabling, Other)
  Sender: FDA-Public Use
  Company Number: PHHY2009NO20351

PATIENT
  Sex: Female

DRUGS (6)
  1. ACLASTA [Suspect]
     Indication: OSTEOPOROSIS
     Dosage: UNK
     Dates: start: 20090122, end: 20090122
  2. CALCIUM [Concomitant]
     Dosage: UNK
     Dates: start: 20090112
  3. STESOLID [Concomitant]
     Dosage: AS NEEDED
  4. RANITIDINE [Concomitant]
     Dosage: AS NEEDED
  5. PINEX FORTE [Concomitant]
     Dosage: AS NEEDED
  6. RINGER [Concomitant]
     Dosage: 1 L, UNK

REACTIONS (8)
  - APPETITE DISORDER [None]
  - ARTHRALGIA [None]
  - DEPRESSION [None]
  - DIZZINESS [None]
  - GAIT DISTURBANCE [None]
  - LABORATORY TEST ABNORMAL [None]
  - MYALGIA [None]
  - NAUSEA [None]
